FAERS Safety Report 19170612 (Version 4)
Quarter: 2021Q2

REPORT INFORMATION
  Report Type: Spontaneous
  Country: HU (occurrence: HU)
  Receive Date: 20210422
  Receipt Date: 20210513
  Transmission Date: 20210717
  Serious: Yes (Hospitalization, Other)
  Sender: FDA-Public Use
  Company Number: HU-PFIZER INC-2021422984

PATIENT
  Age: 77 Year
  Sex: Male
  Weight: 88 kg

DRUGS (34)
  1. PANTOPRAZOLE [Suspect]
     Active Substance: PANTOPRAZOLE
     Dosage: 20 MG, QD
     Route: 048
  2. ENTRESTO [Suspect]
     Active Substance: SACUBITRIL\VALSARTAN
     Dosage: 10 MG, BID (STRENGTH 49/51)
     Route: 065
     Dates: start: 201912, end: 2020
  3. METOTHYRIN [Concomitant]
     Active Substance: METHIMAZOLE
     Dosage: 5 MG (IN THE MORNING)
     Route: 065
     Dates: start: 201910
  4. METOTHYRIN [Concomitant]
     Active Substance: METHIMAZOLE
     Dosage: 0.5 MG, QD
     Route: 065
     Dates: start: 201907
  5. TALLITON [Concomitant]
     Active Substance: CARVEDILOL
     Indication: PRODUCT USED FOR UNKNOWN INDICATION
     Dosage: 6.25 MG, BID
     Route: 065
     Dates: start: 201511
  6. ATORVASTATIN CALCIUM. [Suspect]
     Active Substance: ATORVASTATIN CALCIUM
     Indication: MYOCARDIAL ISCHAEMIA
     Dosage: 40 MG QD (IN THE EVENING)
     Route: 048
     Dates: start: 201910
  7. CARVEDILOL HEXAL [Suspect]
     Active Substance: CARVEDILOL
     Dosage: 6.25 UNK, BID
     Route: 065
     Dates: start: 201907
  8. ENTRESTO [Suspect]
     Active Substance: SACUBITRIL\VALSARTAN
     Dosage: UNK
  9. MAGNEROT [MAGNESIUM OROTATE] [Concomitant]
     Indication: PRODUCT USED FOR UNKNOWN INDICATION
     Dosage: UNK (1X1)
     Route: 065
     Dates: start: 201511
  10. METOTHYRIN [Concomitant]
     Active Substance: METHIMAZOLE
     Indication: PRODUCT USED FOR UNKNOWN INDICATION
     Dosage: 10 MG, TID
     Route: 065
     Dates: start: 201511
  11. INSPRA [Concomitant]
     Active Substance: EPLERENONE
     Dosage: 50 MG, QD
     Route: 065
     Dates: start: 201511
  12. EPLERENONE. [Concomitant]
     Active Substance: EPLERENONE
     Indication: PRODUCT USED FOR UNKNOWN INDICATION
     Dosage: 50 MG (IN THE MORNING)
     Route: 065
     Dates: start: 201910, end: 201910
  13. EPLERENONE. [Concomitant]
     Active Substance: EPLERENONE
     Dosage: 25 MG
     Route: 065
     Dates: start: 201910, end: 202002
  14. EPLERENONE. [Concomitant]
     Active Substance: EPLERENONE
     Dosage: 50 MG, QD
     Route: 065
     Dates: start: 201511
  15. METFORMIN [Suspect]
     Active Substance: METFORMIN HYDROCHLORIDE
     Dosage: 500 MG, TID
     Route: 048
     Dates: start: 2019
  16. FUROSEMIDE. [Concomitant]
     Active Substance: FUROSEMIDE
     Indication: PRODUCT USED FOR UNKNOWN INDICATION
     Dosage: UNK (1?1?0)
     Route: 065
     Dates: start: 2020
  17. CORDARONE [Concomitant]
     Active Substance: AMIODARONE HYDROCHLORIDE
     Indication: PRODUCT USED FOR UNKNOWN INDICATION
     Dosage: 0.8 ML, BID
     Route: 065
     Dates: start: 201511
  18. AMIODARONE [Concomitant]
     Active Substance: AMIODARONE
     Dosage: 200 MG (1X IN THE MORNING)
     Route: 065
     Dates: start: 201511
  19. PERINDOPRIL [Suspect]
     Active Substance: PERINDOPRIL
     Indication: PRODUCT USED FOR UNKNOWN INDICATION
     Dosage: 4 MG (IN THE MORNING)
     Route: 065
  20. TORVATEC [Concomitant]
     Dosage: 40 MG (1X1 IN THE EVENING)
     Route: 065
     Dates: start: 201907
  21. METFORMIN [Suspect]
     Active Substance: METFORMIN HYDROCHLORIDE
     Dosage: 500 MG, TID
     Route: 065
     Dates: start: 201910, end: 202002
  22. ENTRESTO [Suspect]
     Active Substance: SACUBITRIL\VALSARTAN
     Indication: CARDIAC FAILURE
     Dosage: UNK, BID (STRENGTH 49/51)
     Route: 065
     Dates: start: 2020
  23. MAGNESIUM [Concomitant]
     Active Substance: MAGNESIUM
     Indication: PRODUCT USED FOR UNKNOWN INDICATION
     Dosage: UNK
     Route: 065
     Dates: start: 201907
  24. ENTRESTO [Suspect]
     Active Substance: SACUBITRIL\VALSARTAN
     Dosage: 50 MG, BID (STRENGTH: 24/26)
     Route: 048
     Dates: start: 201910, end: 201912
  25. ATORIS [Concomitant]
     Active Substance: ATORVASTATIN CALCIUM
     Dosage: 40 MG
     Route: 065
     Dates: start: 201511
  26. ASA [Concomitant]
     Active Substance: ASPIRIN
     Indication: PRODUCT USED FOR UNKNOWN INDICATION
     Dosage: 100 MG, QD
     Route: 065
     Dates: start: 201511
  27. PRENESSA [Concomitant]
     Active Substance: PERINDOPRIL
     Dosage: 4 MG, BID
     Route: 065
     Dates: start: 201511
  28. SYNCUMAR [Concomitant]
     Active Substance: ACENOCOUMAROL
     Indication: PRODUCT USED FOR UNKNOWN INDICATION
     Dosage: UNK (1 MG?0.5 MG/1.5 MG, CHANGED DAILY)
     Route: 065
     Dates: start: 201511
  29. MERCKFORMIN [Concomitant]
     Active Substance: METFORMIN HYDROCHLORIDE
     Indication: PRODUCT USED FOR UNKNOWN INDICATION
     Dosage: UNK (1X1.5 MG, IN THE EVENING)
     Route: 065
     Dates: start: 201907
  30. PANTOPRAZOLE [Suspect]
     Active Substance: PANTOPRAZOLE
     Indication: GASTROINTESTINAL DISORDER
     Dosage: 20 MG (IN THE MORNING)
     Route: 065
     Dates: start: 201910
  31. METFORMIN [Suspect]
     Active Substance: METFORMIN HYDROCHLORIDE
     Indication: DIABETES MELLITUS
     Dosage: 750 MG, BID
     Route: 065
     Dates: start: 2020
  32. BISOPROLOL [Suspect]
     Active Substance: BISOPROLOL
     Indication: MYOCARDIAL ISCHAEMIA
     Dosage: UNK (5?0?2.5 MG)
     Route: 048
     Dates: start: 201910
  33. BISOPROLOL [Suspect]
     Active Substance: BISOPROLOL
     Dosage: 5 MG (IN THE MORNING)
     Route: 065
     Dates: start: 2020
  34. ENTRESTO [Suspect]
     Active Substance: SACUBITRIL\VALSARTAN
     Dosage: 51 MG, BID (49/51)
     Route: 048
     Dates: start: 20191013

REACTIONS (42)
  - Ventricular tachycardia [Recovered/Resolved]
  - Renal impairment [Recovered/Resolved]
  - Glomerular filtration rate decreased [Recovered/Resolved]
  - Intestinal fistula [Unknown]
  - Blood magnesium increased [Unknown]
  - Orthopnoea [Unknown]
  - Bronchitis [Unknown]
  - Asthenia [Unknown]
  - Right ventricular dysfunction [Unknown]
  - Cardiac failure [Recovered/Resolved]
  - Pulmonary congestion [Unknown]
  - Blood pressure decreased [Unknown]
  - Dyspnoea [Unknown]
  - International normalised ratio increased [Unknown]
  - Chills [Unknown]
  - Azotaemia [Recovered/Resolved]
  - Diabetes mellitus [Unknown]
  - Hypokinesia [Unknown]
  - Activated partial thromboplastin time prolonged [Unknown]
  - Campylobacter infection [Unknown]
  - Brain natriuretic peptide increased [Unknown]
  - Altered state of consciousness [Recovered/Resolved]
  - Blood cyanide increased [Unknown]
  - Blood calcium decreased [Unknown]
  - Mitral valve incompetence [Unknown]
  - Protein total decreased [Unknown]
  - High density lipoprotein decreased [Unknown]
  - C-reactive protein increased [Unknown]
  - Ventricular septal defect [Unknown]
  - Carotid artery stenosis [Unknown]
  - Weight increased [Unknown]
  - Blood pressure increased [Unknown]
  - Blood sodium decreased [Unknown]
  - Weight decreased [Recovering/Resolving]
  - Ejection fraction decreased [Unknown]
  - Myocardial ischaemia [Unknown]
  - Blood glucose increased [Unknown]
  - Brain natriuretic peptide abnormal [Unknown]
  - Diarrhoea [Unknown]
  - Congestive cardiomyopathy [Unknown]
  - Blood creatinine increased [Unknown]
  - Sinus bradycardia [Unknown]

NARRATIVE: CASE EVENT DATE: 201608
